FAERS Safety Report 15839968 (Version 11)
Quarter: 2019Q3

REPORT INFORMATION
  Report Type: Spontaneous
  Country: US (occurrence: US)
  Receive Date: 20190117
  Receipt Date: 20190730
  Transmission Date: 20191004
  Serious: Yes (Death, Hospitalization)
  Sender: FDA-Public Use
  Company Number: US-ACTELION-A-US2019-184866

PATIENT
  Age: 9 Month
  Sex: Female

DRUGS (15)
  1. FAMOTIDINE. [Concomitant]
     Active Substance: FAMOTIDINE
     Dosage: 3.2 MG, Q12HRS
     Dates: start: 20190614
  2. SILDENAFIL. [Concomitant]
     Active Substance: SILDENAFIL
     Dosage: 7 MG, Q6HRS
     Dates: start: 20180917
  3. TRACLEER [Suspect]
     Active Substance: BOSENTAN
     Indication: PULMONARY ARTERIAL HYPERTENSION
     Dosage: 13.6 MG, Q12HRS
     Route: 048
     Dates: start: 20180919
  4. TRACLEER [Suspect]
     Active Substance: BOSENTAN
     Dosage: 16 MG, BID
     Route: 048
  5. TRACLEER [Suspect]
     Active Substance: BOSENTAN
     Dosage: 12.8 MG, BID
     Route: 048
     Dates: start: 20180928
  6. SILDENAFIL. [Concomitant]
     Active Substance: SILDENAFIL
     Indication: PULMONARY ARTERIAL HYPERTENSION
     Dosage: 0.7 ML, Q6HRS
     Route: 065
     Dates: start: 20180917
  7. ASPIRIN. [Concomitant]
     Active Substance: ASPIRIN
     Dosage: 20.25 MG, QD
     Dates: start: 20181105
  8. MULTIVITAMIN [Concomitant]
     Active Substance: VITAMINS
     Dosage: 1 ML, QD
     Dates: start: 20181114
  9. TRACLEER [Suspect]
     Active Substance: BOSENTAN
     Indication: RESPIRATORY SYNCYTIAL VIRUS INFECTION
     Dosage: 16 MG, BID
     Route: 048
     Dates: start: 201810
  10. REMODULIN [Concomitant]
     Active Substance: TREPROSTINIL
     Dosage: 0.023 ML/HR +133 NG/KG/MIN
     Dates: start: 20180928
  11. REMODULIN [Concomitant]
     Active Substance: TREPROSTINIL
     Dosage: 0.023 ML/HR +113 NG/KG/MIN
     Dates: start: 20180928
  12. REMODULIN [Concomitant]
     Active Substance: TREPROSTINIL
     Dosage: 0.023ML/HR, 2.5MG/ML
     Dates: start: 20180919
  13. MORPHINE [Concomitant]
     Active Substance: MORPHINE
     Dosage: 10MG/5ML, 0.17 ML, Q4 PRN
  14. DIAZEPAM. [Concomitant]
     Active Substance: DIAZEPAM
     Dosage: 2.3 MG, TID
     Dates: start: 20190621
  15. ZOFRAN [Concomitant]
     Active Substance: ONDANSETRON HYDROCHLORIDE
     Dosage: 0.8 MG, QD
     Dates: start: 20180511

REACTIONS (26)
  - Adenovirus encephalomyeloradiculitis [Unknown]
  - Vomiting [Not Recovered/Not Resolved]
  - Encephalitis viral [Unknown]
  - Therapy change [Unknown]
  - Cyanosis [Unknown]
  - Viral infection [Unknown]
  - Pyrexia [Unknown]
  - Mobility decreased [Not Recovered/Not Resolved]
  - Mitochondrial encephalomyopathy [Unknown]
  - Hypoxia [Unknown]
  - Blood bicarbonate decreased [Unknown]
  - Progressive multifocal leukoencephalopathy [Fatal]
  - Cough [Not Recovered/Not Resolved]
  - Diarrhoea [Not Recovered/Not Resolved]
  - Chronic respiratory failure [Unknown]
  - Brain natriuretic peptide increased [Unknown]
  - Nausea [Unknown]
  - Anion gap increased [Unknown]
  - Cellulitis [Not Recovered/Not Resolved]
  - Weight increased [Unknown]
  - Infantile apnoea [Fatal]
  - Influenza [Not Recovered/Not Resolved]
  - Blood glucose decreased [Unknown]
  - Neurological examination abnormal [Not Recovered/Not Resolved]
  - Unresponsive to stimuli [Unknown]
  - Leukoencephalopathy [Unknown]

NARRATIVE: CASE EVENT DATE: 20190218
